FAERS Safety Report 6644641-X (Version None)
Quarter: 2010Q1

REPORT INFORMATION
  Report Type: 
  Country: None (occurrence: None)
  Receive Date: 20100322
  Receipt Date: 20100316
  Transmission Date: 20100710
  Serious: Yes (Other)
  Sender: FDA-Public Use
  Company Number: KP-MERCK-1003USA02827

PATIENT
  Age: 61 Year
  Sex: Female

DRUGS (2)
  1. DECADRON [Suspect]
     Indication: ADRENAL NEOPLASM
     Route: 048
  2. DECADRON [Suspect]
     Route: 048

REACTIONS (1)
  - PHAEOCHROMOCYTOMA [None]
